FAERS Safety Report 8374964-8 (Version None)
Quarter: 2012Q2

REPORT INFORMATION
  Report Type: 
  Country: None (occurrence: None)
  Receive Date: 20120521
  Receipt Date: 20120507
  Transmission Date: 20120825
  Serious: Yes (Death)
  Sender: FDA-Public Use
  Company Number: CHPA2012US010662

PATIENT
  Age: 80 Year
  Sex: Male

DRUGS (1)
  1. GAS-X [Suspect]
     Indication: GASTROOESOPHAGEAL REFLUX DISEASE
     Dosage: UNK, UNK
     Route: 048

REACTIONS (2)
  - DEATH [None]
  - OFF LABEL USE [None]
